FAERS Safety Report 6079325-2 (Version None)
Quarter: 2009Q1

REPORT INFORMATION
  Report Type: 
  Country: None (occurrence: None)
  Receive Date: 20090216
  Receipt Date: 20090212
  Transmission Date: 20090719
  Serious: Yes (Hospitalization)
  Sender: FDA-Public Use
  Company Number: FR-ASTRAZENECA-2009CG00367

PATIENT
  Age: 32628 Day
  Sex: Female

DRUGS (4)
  1. TENORMIN [Suspect]
     Route: 048
     Dates: end: 20090122
  2. LASILIX [Concomitant]
     Route: 048
     Dates: end: 20090120
  3. CORDARONE [Concomitant]
  4. KARDEGIC [Concomitant]

REACTIONS (4)
  - BRADYCARDIA [None]
  - BRONCHIAL DISORDER [None]
  - CREATININE RENAL CLEARANCE ABNORMAL [None]
  - OVERDOSE [None]
